FAERS Safety Report 17011549 (Version 1)
Quarter: 2019Q4

REPORT INFORMATION
  Report Type: Report from Study
  Country: CA (occurrence: CA)
  Receive Date: 20191108
  Receipt Date: 20191108
  Transmission Date: 20200122
  Serious: Yes (Other)
  Sender: FDA-Public Use
  Company Number: CA-GLAXOSMITHKLINE-CA2019GSK203136

PATIENT
  Age: 51 Year
  Sex: Female

DRUGS (7)
  1. PENTOXYPHYLINE [Suspect]
     Active Substance: PENTOXIFYLLINE
     Indication: VASCULAR SKIN DISORDER
     Dosage: UNK
  2. EPOPROSTENOL. [Suspect]
     Active Substance: EPOPROSTENOL
     Indication: PRODUCT USED FOR UNKNOWN INDICATION
     Dosage: UNK
  3. MMF [Suspect]
     Active Substance: MYCOPHENOLATE MOFETIL
     Indication: VASCULAR SKIN DISORDER
     Dosage: UNK
  4. AZATHIOPRINE. [Suspect]
     Active Substance: AZATHIOPRINE
     Indication: INTERSTITIAL LUNG DISEASE
     Dosage: UNK
  5. METHOTREXATE. [Suspect]
     Active Substance: METHOTREXATE
     Indication: VASCULAR SKIN DISORDER
     Dosage: UNK
  6. ASPIRIN. [Suspect]
     Active Substance: ASPIRIN
     Indication: VASCULAR SKIN DISORDER
     Dosage: UNK
  7. NITROGLYCERIN. [Suspect]
     Active Substance: NITROGLYCERIN
     Indication: VASCULAR SKIN DISORDER
     Dosage: UNK

REACTIONS (4)
  - Drug ineffective [Unknown]
  - Pain [Unknown]
  - Mycobacterium abscessus infection [Unknown]
  - Peripheral ischaemia [Unknown]
